FAERS Safety Report 10021981 (Version 1)
Quarter: 2014Q1

REPORT INFORMATION
  Report Type: Spontaneous
  Country: US (occurrence: None)
  Receive Date: 20140318
  Receipt Date: 20140318
  Transmission Date: 20141002
  Serious: No
  Sender: FDA-Public Use
  Company Number: None

PATIENT
  Age: 23 Year
  Sex: Female
  Weight: 65.32 kg

DRUGS (1)
  1. LUNESTA [Suspect]
     Dosage: ONCE DAILY TAKEN BY MOUTH
     Dates: start: 20140314, end: 20140314

REACTIONS (5)
  - Abdominal pain upper [None]
  - Diarrhoea [None]
  - Dry mouth [None]
  - Asthenia [None]
  - Paraesthesia [None]
